FAERS Safety Report 5623134-2 (Version None)
Quarter: 2008Q1

REPORT INFORMATION
  Report Type: 
  Country: None (occurrence: None)
  Receive Date: 20080212
  Receipt Date: 20080207
  Transmission Date: 20080703
  Serious: Yes (Other)
  Sender: FDA-Public Use
  Company Number: B0506933A

PATIENT
  Age: 57 Year
  Sex: Female
  Weight: 79.3 kg

DRUGS (3)
  1. CLENIL [Suspect]
     Indication: ASTHMA
     Dosage: 400MCG PER DAY
     Route: 055
     Dates: start: 20070725, end: 20070814
  2. BECLOMETHASONE DIPROPIONATE [Concomitant]
     Indication: ASTHMA
     Route: 055
     Dates: start: 20040728, end: 20070724
  3. TERBUTALINE SULFATE [Concomitant]
     Indication: ASTHMA
     Route: 055
     Dates: start: 20010813

REACTIONS (1)
  - CHEST DISCOMFORT [None]
